FAERS Safety Report 5335908-6 (Version None)
Quarter: 2007Q2

REPORT INFORMATION
  Report Type: 
  Country: None (occurrence: None)
  Receive Date: 20070302
  Receipt Date: 20070115
  Transmission Date: 20071010
  Serious: No
  Sender: FDA-Public Use
  Company Number: PHEH2007US00903

PATIENT
  Age: 34 Year
  Sex: Female
  Weight: 81.6 kg

DRUGS (5)
  1. EXJADE [Suspect]
     Indication: BLOOD IRON INCREASED
     Dosage: 1500 MG, QD, ORAL
     Route: 048
     Dates: start: 20061113, end: 20070113
  2. SYNTHROID [Concomitant]
  3. ACETAMINOPHEN [Concomitant]
  4. ACIPHEX [Concomitant]
  5. PSYLLIUM (PLANTAGO AFRA, PSYLLIUM) [Concomitant]

REACTIONS (3)
  - CONSTIPATION [None]
  - NAUSEA [None]
  - VOMITING [None]
